FAERS Safety Report 7973425-5 (Version None)
Quarter: 2011Q4

REPORT INFORMATION
  Report Type: 
  Country: None (occurrence: None)
  Receive Date: 20111213
  Receipt Date: 20111201
  Transmission Date: 20120403
  Serious: Yes (Hospitalization)
  Sender: FDA-Public Use
  Company Number: JP-ELI_LILLY_AND_COMPANY-JP201110001472

PATIENT
  Age: 65 Year
  Sex: Female

DRUGS (3)
  1. FORTEO [Suspect]
     Indication: OSTEOPOROSIS
     Dosage: UNK
     Route: 058
     Dates: start: 20110929, end: 20111030
  2. FORTEO [Suspect]
     Dosage: UNK
     Route: 058
     Dates: start: 20111106
  3. FORTEO [Suspect]
     Dosage: UNK
     Route: 058
     Dates: start: 20111101, end: 20111104

REACTIONS (5)
  - CATARACT OPERATION [None]
  - OEDEMA PERIPHERAL [None]
  - NASOPHARYNGITIS [None]
  - ARTHRALGIA [None]
  - NAUSEA [None]
